FAERS Safety Report 19476729 (Version 1)
Quarter: 2021Q2

REPORT INFORMATION
  Report Type: Report from Study
  Country: US (occurrence: US)
  Receive Date: 20210630
  Receipt Date: 20210630
  Transmission Date: 20210717
  Serious: Yes (Death, Hospitalization, Other)
  Sender: FDA-Public Use
  Company Number: US-INSMED, INC.-2021-08559-US

PATIENT
  Sex: Female

DRUGS (1)
  1. ARIKAYCE [Suspect]
     Active Substance: AMIKACIN
     Indication: MYCOBACTERIAL INFECTION
     Dosage: 590 MILLIGRAM, QD
     Route: 055
     Dates: start: 20190205

REACTIONS (5)
  - Oxygen saturation decreased [Unknown]
  - Urinary tract infection [Unknown]
  - Death [Fatal]
  - Lung disorder [Not Recovered/Not Resolved]
  - Lung hyperinflation [Not Recovered/Not Resolved]

NARRATIVE: CASE EVENT DATE: 2021
